FAERS Safety Report 16493156 (Version 1)
Quarter: 2019Q2

REPORT INFORMATION
  Report Type: Spontaneous
  Country: CA (occurrence: CA)
  Receive Date: 20190628
  Receipt Date: 20190628
  Transmission Date: 20190711
  Serious: Yes (Other)
  Sender: FDA-Public Use
  Company Number: CA-AUROBINDO-AUR-APL-2019-035724

PATIENT

DRUGS (3)
  1. PAROXETINE TABLET [Suspect]
     Active Substance: PAROXETINE
     Indication: PANIC DISORDER
     Dosage: 60 MILLIGRAM, UNK
     Route: 048
  2. QUETIAPINE FILM-COATED TABLET [Suspect]
     Active Substance: QUETIAPINE
     Indication: PRODUCT USED FOR UNKNOWN INDICATION
     Dosage: 25 MILLIGRAM, UNK
     Route: 065
  3. PAROXETINE TABLET [Suspect]
     Active Substance: PAROXETINE
     Indication: AGORAPHOBIA

REACTIONS (11)
  - Depersonalisation/derealisation disorder [Recovered/Resolved]
  - Withdrawal syndrome [Recovered/Resolved]
  - Agitation [Recovered/Resolved]
  - Musculoskeletal stiffness [Recovered/Resolved]
  - Hypoaesthesia [Recovered/Resolved]
  - Erosive oesophagitis [Recovered/Resolved]
  - Tremor [Recovered/Resolved]
  - Disturbance in attention [Recovered/Resolved]
  - Abdominal pain upper [Recovered/Resolved]
  - Anxiety [Recovered/Resolved]
  - Gastrointestinal disorder [Recovered/Resolved]
